FAERS Safety Report 22141380 (Version 2)
Quarter: 2023Q2

REPORT INFORMATION
  Report Type: Spontaneous
  Country: US (occurrence: US)
  Receive Date: 20230327
  Receipt Date: 20230425
  Transmission Date: 20230722
  Serious: Yes (Other)
  Sender: FDA-Public Use
  Company Number: US-PFIZER INC-202300127517

PATIENT
  Age: 50 Year
  Sex: Female
  Weight: 56.698 kg

DRUGS (16)
  1. LEVETIRACETAM [Suspect]
     Active Substance: LEVETIRACETAM
     Indication: Seizure
     Dosage: 500 MG, 2X/DAY
     Dates: start: 20211117
  2. KEPPRA [Suspect]
     Active Substance: LEVETIRACETAM
     Dosage: 500 MG, 2X/DAY
     Dates: start: 202111
  3. KEPPRA [Suspect]
     Active Substance: LEVETIRACETAM
     Dosage: 250 MG, 2X/DAY
     Dates: start: 20211202
  4. KEPPRA [Suspect]
     Active Substance: LEVETIRACETAM
     Dosage: 250 MG, 1X/DAY
     Dates: start: 20230117
  5. ASPIRIN [Concomitant]
     Active Substance: ASPIRIN
     Dosage: 81 MG, 1X/DAY
     Route: 048
     Dates: start: 20211202
  6. ASPIRIN [Concomitant]
     Active Substance: ASPIRIN
     Dosage: UNK, 1X/DAY (1 TABLET ONCE A DAY)
     Dates: start: 20230117
  7. LEVOTHYROXINE [Concomitant]
     Active Substance: LEVOTHYROXINE
     Dosage: 50 UG, 1X/DAY
     Route: 048
     Dates: start: 20221004
  8. LEVOTHYROXINE [Concomitant]
     Active Substance: LEVOTHYROXINE
     Dosage: 50 MG, 1X/DAY
     Route: 048
     Dates: start: 20230117
  9. ELIQUIS [Concomitant]
     Active Substance: APIXABAN
     Dosage: 5 MG, 2X/DAY (TAKE 1 TABLET TWICE DAILY)
     Dates: start: 20230209
  10. VALACYCLOVIR HYDROCHLORIDE [Concomitant]
     Active Substance: VALACYCLOVIR HYDROCHLORIDE
     Dosage: 1 MG, 3X/DAY (TAKE 1 TABLET BY MOUTH EVERY 8 HOURS)
     Route: 048
     Dates: start: 20211122
  11. ROSUVASTATIN [Concomitant]
     Active Substance: ROSUVASTATIN
     Dosage: 5 MG, DAILY (TAKE I TABLET BY MOUTH EVERY DAY)
     Route: 048
     Dates: start: 20221019
  12. SODIUM [Concomitant]
     Active Substance: SODIUM
     Dosage: 17.5 G (17.5 GRAM ORAL SOLN)
     Route: 048
     Dates: start: 20221002
  13. POTASSIUM [Concomitant]
     Active Substance: POTASSIUM
     Dosage: 13.3 G (13.3 GRAM ORAL SOLN)
     Route: 048
     Dates: start: 20221002
  14. MAGNESIUM SULFATE [Concomitant]
     Active Substance: MAGNESIUM SULFATE
     Dosage: 1.6 G (I .6 GRAM ORAL SOLN)
     Route: 048
     Dates: start: 20221002
  15. NITROFURANTOIN MONOHYDRATE [Concomitant]
     Active Substance: NITROFURANTOIN MONOHYDRATE
     Dosage: 100 MG, 2X/DAY (TAKE 1 CAPSULE BY MOUTH TWICE DAILY FOR 14 DAY)
     Route: 048
     Dates: start: 20220719
  16. LATANOPROST [Concomitant]
     Active Substance: LATANOPROST
     Dosage: 0.005 % (INSTILL 1 DROP IN BOTH EYES AT BEDTIME AS DIRECTED)
     Route: 047
     Dates: start: 20221125

REACTIONS (25)
  - Systemic lupus erythematosus [Not Recovered/Not Resolved]
  - Lupus-like syndrome [Unknown]
  - Infarction [Unknown]
  - Fatigue [Not Recovered/Not Resolved]
  - Asthenia [Not Recovered/Not Resolved]
  - Muscle tightness [Not Recovered/Not Resolved]
  - Temporomandibular joint syndrome [Not Recovered/Not Resolved]
  - Nausea [Not Recovered/Not Resolved]
  - Personality change [Not Recovered/Not Resolved]
  - Mood altered [Not Recovered/Not Resolved]
  - Dyspepsia [Not Recovered/Not Resolved]
  - Dry eye [Not Recovered/Not Resolved]
  - Intraocular pressure increased [Not Recovered/Not Resolved]
  - Depression [Unknown]
  - Illness [Not Recovered/Not Resolved]
  - Malaise [Unknown]
  - Rash [Unknown]
  - Alopecia [Unknown]
  - Dry mouth [Unknown]
  - Nasal congestion [Unknown]
  - Anger [Unknown]
  - Stomatitis [Unknown]
  - Inflammation [Unknown]
  - Photosensitivity reaction [Unknown]
  - Arthralgia [Unknown]

NARRATIVE: CASE EVENT DATE: 20230201
